FAERS Safety Report 5012686-1 (Version None)
Quarter: 2006Q2

REPORT INFORMATION
  Report Type: 
  Country: None (occurrence: None)
  Receive Date: 20060524
  Receipt Date: 20060314
  Transmission Date: 20061013
  Serious: Yes (Death)
  Sender: FDA-Public Use
  Company Number: T200600360

PATIENT
  Age: 45 Year

DRUGS (3)
  1. MORPHINE SULFATE ER (MORPHINE SULFATE) TABLET [Suspect]
     Dosage: ORAL
     Route: 048
  2. CLOZAPINE [Suspect]
  3. LORAZEPAM [Suspect]

REACTIONS (1)
  - MEDICATION ERROR [None]
